FAERS Safety Report 4984981-3 (Version None)
Quarter: 2006Q2

REPORT INFORMATION
  Report Type: 
  Country: None (occurrence: None)
  Receive Date: 20060426
  Receipt Date: 20060426
  Transmission Date: 20061013
  Serious: Yes (Other)
  Sender: FDA-Public Use
  Company Number: None

PATIENT
  Age: 59 Year
  Sex: Male

DRUGS (3)
  1. FLUOXETINE [Suspect]
     Indication: OBSESSIVE-COMPULSIVE DISORDER
     Dosage: Q AM  PO   (HAS BEEN ON PROZAC SINCE 12/95)
     Route: 048
     Dates: start: 19951201
  2. FLUOXETINE [Suspect]
     Indication: PANIC DISORDER
     Dosage: Q AM  PO   (HAS BEEN ON PROZAC SINCE 12/95)
     Route: 048
     Dates: start: 19951201
  3. KLONOPIN [Concomitant]

REACTIONS (5)
  - CARDIAC DISORDER [None]
  - DYSPHORIA [None]
  - OBSESSIVE-COMPULSIVE DISORDER [None]
  - PANIC ATTACK [None]
  - PHARMACEUTICAL PRODUCT COMPLAINT [None]
